FAERS Safety Report 14091667 (Version 2)
Quarter: 2017Q4

REPORT INFORMATION
  Report Type: Report from Study
  Country: JP (occurrence: JP)
  Receive Date: 20171016
  Receipt Date: 20171116
  Transmission Date: 20180321
  Serious: Yes (Hospitalization, Other)
  Sender: FDA-Public Use
  Company Number: JP-ACTELION-A-CH2016-147081

PATIENT
  Age: 53 Year
  Sex: Male

DRUGS (6)
  1. WARFARIN [Concomitant]
     Active Substance: WARFARIN
  2. DIART [Concomitant]
     Active Substance: AZOSEMIDE
  3. RENIVACE [Concomitant]
     Active Substance: ENALAPRIL
  4. TANATRIL [Concomitant]
     Active Substance: IMIDAPRIL
  5. OPSUMIT [Suspect]
     Active Substance: MACITENTAN
     Indication: PULMONARY ARTERIAL HYPERTENSION
     Dosage: 10 MG, OD
     Route: 048
     Dates: start: 20160817, end: 20161216
  6. ARTIST [Concomitant]
     Active Substance: CARVEDILOL

REACTIONS (4)
  - Platelet count decreased [Recovered/Resolved]
  - Dyspnoea exertional [Recovering/Resolving]
  - Cardiac failure [Recovering/Resolving]
  - Oedema peripheral [Recovering/Resolving]

NARRATIVE: CASE EVENT DATE: 20161202
